FAERS Safety Report 4497175-5 (Version None)
Quarter: 2004Q4

REPORT INFORMATION
  Report Type: 
  Country: None (occurrence: None)
  Receive Date: 20041110
  Receipt Date: 20040617
  Transmission Date: 20050328
  Serious: Yes (Life-Threatening, Hospitalization)
  Sender: FDA-Public Use
  Company Number: 200412075JP

PATIENT
  Age: 76 Year
  Sex: Female
  Weight: 42 kg

DRUGS (19)
  1. ARAVA [Suspect]
     Indication: RHEUMATOID ARTHRITIS
     Route: 048
     Dates: start: 20040310, end: 20040729
  2. PREDONINE [Concomitant]
     Indication: RHEUMATOID ARTHRITIS
     Route: 048
  3. OMEPRAL [Concomitant]
     Indication: GASTRITIS
     Route: 048
  4. CYTOTEC [Concomitant]
     Indication: GASTRITIS
     Route: 048
     Dates: end: 20040525
  5. CYTOTEC [Concomitant]
     Indication: REFLUX OESOPHAGITIS
     Route: 048
     Dates: end: 20040525
  6. VOLTAREN [Concomitant]
     Indication: RHEUMATOID ARTHRITIS
     Route: 048
  7. ADALAT [Concomitant]
     Indication: HYPERTENSION
     Route: 048
  8. AZULFIDINE [Concomitant]
     Indication: RHEUMATOID ARTHRITIS
     Route: 048
     Dates: end: 20040309
  9. FOSAMAC TABLETS [Concomitant]
     Indication: OSTEOPOROSIS
     Route: 048
     Dates: start: 20040421, end: 20040526
  10. VASOLAN [Concomitant]
     Indication: ATRIAL FIBRILLATION
     Route: 048
     Dates: start: 20040503
  11. VASOLAN [Concomitant]
     Indication: INSOMNIA
     Route: 048
     Dates: start: 20040503
  12. DORNER [Concomitant]
     Indication: ATHEROSCLEROSIS OBLITERANS
     Route: 048
     Dates: start: 20040510
  13. RENIVACE [Concomitant]
     Indication: HYPERTENSION
     Route: 048
     Dates: start: 20040503
  14. EPADEL [Concomitant]
     Indication: ATHEROSCLEROSIS OBLITERANS
     Route: 048
     Dates: start: 20040510
  15. LASIX [Concomitant]
     Indication: CARDIAC FAILURE
     Route: 048
     Dates: start: 20040502, end: 20040506
  16. HEPARIN [Concomitant]
     Indication: PERIPHERAL OCCLUSIVE DISEASE
     Route: 042
     Dates: start: 20040505, end: 20040518
  17. LANIRAPID [Concomitant]
     Indication: CARDIAC FAILURE
     Route: 048
     Dates: start: 20040502, end: 20040506
  18. BUFFERIN [Concomitant]
     Indication: ATHEROSCLEROSIS OBLITERANS
     Route: 048
  19. AMOBAN [Concomitant]
     Indication: INSOMNIA
     Route: 048
     Dates: start: 20040603

REACTIONS (22)
  - ABDOMINAL PAIN [None]
  - AMYLOIDOSIS [None]
  - ANAEMIA [None]
  - ANOREXIA [None]
  - ARTERIAL OCCLUSIVE DISEASE [None]
  - ASPARTATE AMINOTRANSFERASE INCREASED [None]
  - ATHEROSCLEROSIS OBLITERANS [None]
  - ATRIAL FIBRILLATION [None]
  - BLOOD UREA INCREASED [None]
  - C-REACTIVE PROTEIN INCREASED [None]
  - CARDIAC FAILURE CONGESTIVE [None]
  - DIARRHOEA [None]
  - ENTEROCOLITIS [None]
  - FEELING ABNORMAL [None]
  - FEMORAL ARTERIAL STENOSIS [None]
  - HEADACHE [None]
  - HYPOALBUMINAEMIA [None]
  - HYPOPROTEINAEMIA [None]
  - LEG AMPUTATION [None]
  - MALNUTRITION [None]
  - PROTEIN TOTAL DECREASED [None]
  - STRESS SYMPTOMS [None]
